FAERS Safety Report 7621532-9 (Version None)
Quarter: 2011Q3

REPORT INFORMATION
  Report Type: 
  Country: None (occurrence: None)
  Receive Date: 20110719
  Receipt Date: 20110713
  Transmission Date: 20111222
  Serious: Yes (Hospitalization)
  Sender: FDA-Public Use
  Company Number: BE-ABBOTT-11P-013-0838431-00

PATIENT
  Sex: Male

DRUGS (2)
  1. HUMIRA [Suspect]
     Indication: ANKYLOSING SPONDYLITIS
     Dates: start: 20100112, end: 20110104
  2. HUMIRA [Suspect]
     Dates: start: 20110215

REACTIONS (8)
  - COUGH [None]
  - DYSPNOEA [None]
  - VOMITING [None]
  - ASTHENIA [None]
  - DIARRHOEA [None]
  - RENAL FAILURE [None]
  - PNEUMONIA STAPHYLOCOCCAL [None]
  - PYREXIA [None]
